FAERS Safety Report 22306718 (Version 2)
Quarter: 2023Q2

REPORT INFORMATION
  Report Type: Other
  Country: US (occurrence: US)
  Receive Date: 20230511
  Receipt Date: 20230608
  Transmission Date: 20230722
  Serious: No
  Sender: FDA-Public Use
  Company Number: US-TOLMAR, INC.-23US040431

PATIENT
  Sex: Female

DRUGS (17)
  1. BENZOYL PEROXIDE\CLINDAMYCIN PHOSPHATE [Suspect]
     Active Substance: BENZOYL PEROXIDE\CLINDAMYCIN PHOSPHATE
     Indication: Hidradenitis
     Dosage: 1-5%
     Route: 003
  2. CHLORHEXIDINE GLUCONATE [Suspect]
     Active Substance: CHLORHEXIDINE GLUCONATE
     Indication: Hidradenitis
     Dosage: 4%
     Route: 003
  3. KETOCONAZOLE [Suspect]
     Active Substance: KETOCONAZOLE
     Indication: Hidradenitis
     Dosage: 2%
     Route: 003
  4. TACROLIMUS [Suspect]
     Active Substance: TACROLIMUS
     Indication: Hidradenitis
     Dosage: 0.1%
     Route: 003
  5. TRETINOIN [Suspect]
     Active Substance: TRETINOIN
     Indication: Hidradenitis
     Dosage: 0.05%
     Route: 003
  6. TRIAMCINOLONE [Suspect]
     Active Substance: TRIAMCINOLONE
     Indication: Hidradenitis
     Dosage: 0.1%
     Route: 003
  7. ASPIRIN [Suspect]
     Active Substance: ASPIRIN
     Indication: Hidradenitis
     Dosage: 81 MILLIGRAM
  8. ESCITALOPRAM [Suspect]
     Active Substance: ESCITALOPRAM OXALATE
     Indication: Hidradenitis
     Dosage: 20 MILLIGRAM
     Route: 048
  9. LEVOTHYROXINE [Suspect]
     Active Substance: LEVOTHYROXINE
     Indication: Hidradenitis
     Dosage: 75 MICROGRAM
     Route: 048
  10. LISINOPRIL [Suspect]
     Active Substance: LISINOPRIL
     Indication: Hidradenitis
     Dosage: 20 MILLIGRAM
     Route: 048
  11. METFORMIN [Suspect]
     Active Substance: METFORMIN HYDROCHLORIDE
     Indication: Hidradenitis
     Dosage: 500 MILLIGRAM
     Route: 048
  12. MINOCYCLINE [Suspect]
     Active Substance: MINOCYCLINE HYDROCHLORIDE
     Indication: Hidradenitis
     Dosage: 100 MILLIGRAM
     Route: 048
  13. SIMVASTATIN [Suspect]
     Active Substance: SIMVASTATIN
     Indication: Hidradenitis
     Dosage: 40 MILLIGRAM
     Route: 048
  14. SPIRONOLACTONE [Suspect]
     Active Substance: SPIRONOLACTONE
     Indication: Hidradenitis
     Dosage: 100 MILLIGRAM
     Route: 048
  15. VITAMIN D3 [Suspect]
     Active Substance: CHOLECALCIFEROL
     Indication: Hidradenitis
     Dosage: 3000 INTERNATIONAL UNIT
     Route: 048
  16. MOUNJARO [Suspect]
     Active Substance: TIRZEPATIDE
     Indication: Hidradenitis
     Dosage: UNK
  17. NEXPLANON [Suspect]
     Active Substance: ETONOGESTREL
     Indication: Hidradenitis
     Dosage: 68 MILLIGRAM
     Route: 037

REACTIONS (2)
  - Off label use [Unknown]
  - Drug ineffective [Unknown]
